FAERS Safety Report 6871456-X (Version None)
Quarter: 2010Q3

REPORT INFORMATION
  Report Type: 
  Country: None (occurrence: None)
  Receive Date: 20100723
  Receipt Date: 20100719
  Transmission Date: 20110219
  Serious: Yes (Life-Threatening, Hospitalization, Other)
  Sender: FDA-Public Use
  Company Number: US-BAYER-201028376NA

PATIENT
  Age: 19 Year
  Sex: Male

DRUGS (1)
  1. AVELOX [Suspect]
     Indication: SINUSITIS
     Route: 048
     Dates: start: 20100420, end: 20100423

REACTIONS (4)
  - FACE INJURY [None]
  - LOSS OF CONSCIOUSNESS [None]
  - SYNCOPE [None]
  - TREMOR [None]
